FAERS Safety Report 8100703-1 (Version None)
Quarter: 2012Q1

REPORT INFORMATION
  Report Type: 
  Country: None (occurrence: None)
  Receive Date: 20120129
  Receipt Date: 20111108
  Transmission Date: 20120608
  Serious: No
  Sender: FDA-Public Use
  Company Number: US-ABBOTT-11P-163-0723372-00

PATIENT
  Sex: Female
  Weight: 97.61 kg

DRUGS (5)
  1. UNKNOWN EYE DROPS [Concomitant]
     Indication: GLAUCOMA
  2. HUMIRA [Suspect]
  3. HUMIRA [Suspect]
     Indication: RHEUMATOID ARTHRITIS
     Route: 058
     Dates: start: 20100101, end: 20100101
  4. METHOTREXATE [Concomitant]
     Indication: RHEUMATOID ARTHRITIS
  5. UNKNOWN EYE DROPS [Concomitant]
     Indication: MACULAR DEGENERATION

REACTIONS (2)
  - RHEUMATOID ARTHRITIS [None]
  - NASOPHARYNGITIS [None]
